FAERS Safety Report 24592560 (Version 3)
Quarter: 2025Q1

REPORT INFORMATION
  Report Type: Spontaneous
  Country: US (occurrence: US)
  Receive Date: 20241108
  Receipt Date: 20250123
  Transmission Date: 20250409
  Serious: No
  Sender: NOVARTIS
  Company Number: US-002147023-NVSC2024US215239

PATIENT
  Sex: Female

DRUGS (1)
  1. KESIMPTA [Suspect]
     Active Substance: OFATUMUMAB
     Indication: Cytomegalovirus infection
     Dosage: 20 MG, QMO
     Route: 058

REACTIONS (2)
  - Cytomegalovirus test positive [Unknown]
  - Off label use [Unknown]
